FAERS Safety Report 17136246 (Version 1)
Quarter: 2019Q4

REPORT INFORMATION
  Report Type: Spontaneous
  Country: US (occurrence: US)
  Receive Date: 20191210
  Receipt Date: 20191210
  Transmission Date: 20200122
  Serious: No
  Sender: FDA-Public Use
  Company Number: US-BAUSCH-BL-2019-061835

PATIENT
  Age: 87 Year
  Sex: Female

DRUGS (2)
  1. LATANOPROST OPHTHALMIC SOLUTION 0.005% [Suspect]
     Active Substance: LATANOPROST
     Indication: GLAUCOMA
     Dosage: 1 DROP IN BOTH EYES NIGHTLY, APPROXIMATELY 11 YEARS AGO
     Route: 047
  2. RESTASIS [Suspect]
     Active Substance: CYCLOSPORINE
     Indication: DRY EYE
     Dosage: FOR SEVERAL WEEKS
     Route: 047

REACTIONS (3)
  - Erythema of eyelid [Recovered/Resolved]
  - Dry eye [Not Recovered/Not Resolved]
  - Eyelid pain [Recovered/Resolved]
